FAERS Safety Report 5071641-6 (Version None)
Quarter: 2006Q3

REPORT INFORMATION
  Report Type: 
  Country: None (occurrence: None)
  Receive Date: 20060804
  Receipt Date: 20060724
  Transmission Date: 20061208
  Serious: Yes (Hospitalization)
  Sender: FDA-Public Use
  Company Number: ZA-GILEAD-2006-0009921

PATIENT
  Age: 26 Year
  Sex: Female
  Weight: 61.1 kg

DRUGS (3)
  1. EMTRICITABINE/TENOFOVIR DISOPROXIL FUMARATE [Suspect]
     Indication: HIV INFECTION
     Route: 048
     Dates: start: 20060131, end: 20060707
  2. NEVIRAPINE [Suspect]
     Indication: HIV INFECTION
     Route: 048
     Dates: start: 20060131, end: 20060707
  3. VITAMIN B COMPLEX CAP [Concomitant]

REACTIONS (3)
  - DELUSION [None]
  - FLIGHT OF IDEAS [None]
  - PSYCHOTIC DISORDER [None]
